FAERS Safety Report 17719001 (Version 2)
Quarter: 2020Q2

REPORT INFORMATION
  Report Type: Report from Study
  Country: TW (occurrence: TW)
  Receive Date: 20200428
  Receipt Date: 20200508
  Transmission Date: 20200714
  Serious: Yes (Other)
  Sender: FDA-Public Use
  Company Number: TW-UCBSA-2017006512

PATIENT
  Age: 22 Year
  Sex: Female

DRUGS (10)
  1. KENTAMIN [Concomitant]
     Indication: VITAMIN B12 DEFICIENCY
  2. LACOSAMIDE. [Suspect]
     Active Substance: LACOSAMIDE
     Indication: EPILEPSY
     Dosage: 50 MG, 2X/DAY (BID)
     Route: 048
     Dates: start: 20170117, end: 2017
  3. LEVETIRACETAM. [Concomitant]
     Active Substance: LEVETIRACETAM
     Indication: EPILEPSY
     Dosage: 500 MG, 2X/DAY (BID)
     Route: 048
     Dates: start: 20170117
  4. KENTAMIN [Concomitant]
     Indication: VITAMIN B6 DEFICIENCY
  5. LAMOTRIGINE. [Concomitant]
     Active Substance: LAMOTRIGINE
     Dosage: 100 MG, 2X/DAY (BID)
     Route: 048
     Dates: start: 20170824
  6. LACOSAMIDE. [Suspect]
     Active Substance: LACOSAMIDE
     Dosage: 100 MG, 2X/DAY (BID)
     Route: 048
     Dates: start: 2017
  7. CELECOXIB. [Concomitant]
     Active Substance: CELECOXIB
     Indication: PAIN
     Dosage: 200 MG, ONCE DAILY (QD)
     Route: 048
     Dates: start: 20161122
  8. LAMOTRIGINE. [Concomitant]
     Active Substance: LAMOTRIGINE
     Indication: EPILEPSY
     Dosage: 50 MG, 2X/DAY (BID)
     Route: 048
     Dates: start: 20160902
  9. LORAZEPAM. [Concomitant]
     Active Substance: LORAZEPAM
     Indication: INSOMNIA
     Dosage: 1 MG, ONCE DAILY (QD)
     Route: 048
     Dates: start: 20161003
  10. KENTAMIN [Concomitant]
     Indication: VITAMIN B1 DEFICIENCY
     Dosage: 50MG/50MG/500MG, 4X/DAY (QID)
     Route: 048
     Dates: start: 20161024

REACTIONS (4)
  - Caesarean section [Unknown]
  - Constipation [Recovered/Resolved]
  - Pregnancy with contraceptive device [Recovered/Resolved]
  - Maternal exposure before pregnancy [Unknown]

NARRATIVE: CASE EVENT DATE: 2017
